FAERS Safety Report 5176824-2 (Version None)
Quarter: 2006Q4

REPORT INFORMATION
  Report Type: 
  Country: None (occurrence: None)
  Receive Date: 20061218
  Receipt Date: 20061207
  Transmission Date: 20070319
  Serious: Yes (Hospitalization)
  Sender: FDA-Public Use
  Company Number: US-JNJFOC-20061202560

PATIENT
  Sex: Female
  Weight: 45.81 kg

DRUGS (8)
  1. DURAGESIC-100 [Suspect]
     Indication: MIGRAINE
     Route: 062
  2. DURAGESIC-100 [Suspect]
     Indication: NECK PAIN
     Route: 062
  3. PREMARIN [Suspect]
     Indication: DRUG USE FOR UNKNOWN INDICATION
     Route: 048
  4. DEPAKOTE [Suspect]
     Indication: BIPOLAR DISORDER
     Route: 048
  5. KLONOPIN [Concomitant]
     Indication: DEPRESSION
     Route: 048
  6. EFFEXOR XR [Concomitant]
     Indication: BIPOLAR DISORDER
     Route: 048
  7. SEROQUEL [Concomitant]
     Route: 048
  8. SEROQUEL [Concomitant]
     Indication: BIPOLAR DISORDER
     Route: 048

REACTIONS (7)
  - ANAEMIA [None]
  - ASTHENIA [None]
  - JAUNDICE [None]
  - MENORRHAGIA [None]
  - MIGRAINE [None]
  - UTERINE MASS [None]
  - VOMITING [None]
